FAERS Safety Report 7919388-X (Version None)
Quarter: 2011Q4

REPORT INFORMATION
  Report Type: 
  Country: None (occurrence: None)
  Receive Date: 20111115
  Receipt Date: 20111115
  Transmission Date: 20120403
  Serious: Yes (Life-Threatening)
  Sender: FDA-Public Use
  Company Number: None

PATIENT

DRUGS (1)
  1. NIACIN [Suspect]
     Indication: HYPERLIPIDAEMIA
     Dosage: 750 MG AT BEDTIME PO
     Route: 048
     Dates: start: 20110317, end: 20110719

REACTIONS (4)
  - URTICARIA [None]
  - FEELING HOT [None]
  - ANGIOEDEMA [None]
  - RASH [None]
